FAERS Safety Report 7904193-0 (Version None)
Quarter: 2011Q4

REPORT INFORMATION
  Report Type: 
  Country: None (occurrence: None)
  Receive Date: 20111109
  Receipt Date: 20111028
  Transmission Date: 20120403
  Serious: Yes (Other)
  Sender: FDA-Public Use
  Company Number: US-BAYER-2011-028290

PATIENT
  Age: 29 Year
  Sex: Female

DRUGS (9)
  1. YAZ [Suspect]
     Indication: ACNE
  2. YAZ [Suspect]
     Indication: ABDOMINAL DISTENSION
  3. PREVACID [Concomitant]
     Dosage: UNK
     Dates: start: 20050101
  4. YAZ [Suspect]
     Indication: WEIGHT DECREASED
  5. PRILOSEC [Concomitant]
     Dosage: UNK
     Dates: start: 20050101
  6. PROTONIX [Concomitant]
     Dosage: UNK
     Dates: start: 20050101
  7. ACIPHEX [Concomitant]
     Dosage: UNK
     Dates: start: 20050101
  8. YAZ [Suspect]
     Indication: CONTRACEPTION
     Dosage: UNK
     Dates: start: 20081201, end: 20091001
  9. CENTRUM [Concomitant]
     Indication: MEDICAL DIET
     Dosage: 3-5 A WEEK

REACTIONS (4)
  - GALLBLADDER DISORDER [None]
  - PAIN [None]
  - ABDOMINAL PAIN [None]
  - INJURY [None]
